FAERS Safety Report 9710058 (Version 1)
Quarter: 2013Q4

REPORT INFORMATION
  Report Type: Spontaneous
  Country: US (occurrence: US)
  Receive Date: 20131126
  Receipt Date: 20131126
  Transmission Date: 20140711
  Serious: No
  Sender: FDA-Public Use
  Company Number: US-009507513-1311USA010864

PATIENT
  Age: 10 Year
  Sex: Female

DRUGS (5)
  1. ASMANEX TWISTHALER [Suspect]
     Indication: COUGH
     Dosage: 110 MICROGRAM, BID
     Route: 055
  2. ASMANEX TWISTHALER [Suspect]
     Indication: PULMONARY CONGESTION
     Dosage: 110 MICROGRAM, QD
     Route: 055
  3. PROAIR HFA [Concomitant]
  4. LORATADINE [Concomitant]
  5. NASONEX [Concomitant]

REACTIONS (2)
  - Dyspnoea [Not Recovered/Not Resolved]
  - Drug dose omission [Unknown]
